FAERS Safety Report 14274325 (Version 2)
Quarter: 2018Q1

REPORT INFORMATION
  Report Type: Spontaneous
  Country: GB (occurrence: GB)
  Receive Date: 20171211
  Receipt Date: 20180206
  Transmission Date: 20180508
  Serious: Yes (Other)
  Sender: FDA-Public Use
  Company Number: GB-OTSUKA-2015_015634

PATIENT
  Age: 59 Year
  Sex: Male

DRUGS (1)
  1. ABILIFY [Suspect]
     Active Substance: ARIPIPRAZOLE
     Indication: BIPOLAR DISORDER
     Dosage: 15 MG, QD
     Route: 048

REACTIONS (2)
  - Blood creatine phosphokinase increased [Unknown]
  - Rhabdomyolysis [Unknown]
